FAERS Safety Report 10080646 (Version 2)
Quarter: 2014Q2

REPORT INFORMATION
  Report Type: Other
  Country: IT (occurrence: IT)
  Receive Date: 20140416
  Receipt Date: 20140416
  Transmission Date: 20141212
  Serious: Yes (Hospitalization)
  Sender: FDA-Public Use
  Company Number: IT-SUN PHARMACEUTICAL INDUSTRIES LTD-2014SUN00643

PATIENT
  Age: 66 Year
  Sex: Male

DRUGS (4)
  1. OXALIPLATIN [Suspect]
     Indication: COLON CANCER
     Dosage: UNK
     Route: 042
     Dates: start: 20131202, end: 20131209
  2. OXALIPLATIN [Suspect]
     Indication: ADENOCARCINOMA OF COLON
     Dosage: 70 MG/M2, CYCLIC
     Route: 042
     Dates: start: 20131209, end: 20140303
  3. ERBITUX [Suspect]
     Indication: COLON CANCER
     Dosage: 250 MG/M2, CYCLIC
     Route: 042
     Dates: start: 20131202, end: 20140324
  4. IRINOTECAN [Suspect]
     Indication: RECTAL CANCER STAGE IV
     Dosage: 120 MG/M2, CYCLIC
     Route: 042
     Dates: start: 20131202, end: 20140317

REACTIONS (4)
  - Atrial fibrillation [Recovered/Resolved]
  - Nasopharyngitis [Recovered/Resolved]
  - Hyperpyrexia [Recovered/Resolved]
  - Hyperhidrosis [Recovered/Resolved]
